FAERS Safety Report 8450917-6 (Version None)
Quarter: 2012Q2

REPORT INFORMATION
  Report Type: 
  Country: None (occurrence: None)
  Receive Date: 20120615
  Receipt Date: 20120615
  Transmission Date: 20120825
  Serious: No
  Sender: FDA-Public Use
  Company Number: None

PATIENT

DRUGS (2)
  1. POLYETHYLENE GLYCOL 3350 [Suspect]
     Dates: start: 20110101
  2. THICK+EASY INSTANT FOOD + BEVERAGE THICKER, NECTAR THICK AND HONEY THI [Suspect]

REACTIONS (1)
  - FOOD INTERACTION [None]
